FAERS Safety Report 4778124-9 (Version None)
Quarter: 2005Q3

REPORT INFORMATION
  Report Type: 
  Country: None (occurrence: None)
  Receive Date: 20050922
  Receipt Date: 20050831
  Transmission Date: 20060218
  Serious: Yes (Hospitalization)
  Sender: FDA-Public Use
  Company Number: BASF-05-010

PATIENT
  Age: 71 Year
  Sex: Male
  Weight: 67.1324 kg

DRUGS (3)
  1. IBUPROFEN [Suspect]
     Indication: CONDITION AGGRAVATED
     Dosage: BID ON AND OFF
     Dates: start: 19900101, end: 20000401
  2. IBUPROFEN [Suspect]
     Indication: GOUT
     Dosage: BID ON AND OFF
     Dates: start: 19900101, end: 20000401
  3. COLCHICINE [Concomitant]

REACTIONS (3)
  - AUTOIMMUNE DISORDER [None]
  - DIALYSIS [None]
  - RENAL FAILURE [None]
